FAERS Safety Report 8031878-0 (Version None)
Quarter: 2012Q1

REPORT INFORMATION
  Report Type: 
  Country: None (occurrence: None)
  Receive Date: 20120109
  Receipt Date: 20111227
  Transmission Date: 20120608
  Serious: Yes (Hospitalization)
  Sender: FDA-Public Use
  Company Number: JP-ASTRAZENECA-2011SE68385

PATIENT
  Age: 26564 Day
  Sex: Male
  Weight: 64 kg

DRUGS (12)
  1. ETODOLAC [Concomitant]
     Indication: RHEUMATOID ARTHRITIS
     Route: 048
  2. BICALUTAMIDE [Concomitant]
     Indication: ASTHMA
     Route: 048
     Dates: start: 20111019
  3. UNIPHYL LA [Concomitant]
     Indication: ASTHMA
     Route: 048
  4. KELNAC [Concomitant]
     Indication: GASTRITIS
     Route: 048
  5. SENNAL [Concomitant]
     Indication: CONSTIPATION
     Route: 048
  6. ZOLADEX [Suspect]
     Indication: PROSTATE CANCER
     Route: 058
     Dates: start: 20111108
  7. MAGNESIUM OXIDE [Concomitant]
     Indication: CONSTIPATION
     Route: 048
  8. PREDNISOLONE [Concomitant]
     Indication: RHEUMATOID ARTHRITIS
     Route: 048
  9. MONTELUKAST SODIUM [Concomitant]
     Indication: ASTHMA
     Route: 048
  10. MUCODYNE [Concomitant]
     Indication: ASTHMA
     Route: 048
  11. RIMATIL [Concomitant]
     Indication: RHEUMATOID ARTHRITIS
     Route: 048
  12. HOKUNALIN [Concomitant]
     Indication: PROSTATE CANCER
     Route: 062

REACTIONS (1)
  - PITUITARY HAEMORRHAGE [None]
